FAERS Safety Report 9921260 (Version 1)
Quarter: 2014Q1

REPORT INFORMATION
  Report Type: Spontaneous
  Country: US (occurrence: None)
  Receive Date: 20140221
  Receipt Date: 20140221
  Transmission Date: 20141002
  Serious: No
  Sender: FDA-Public Use
  Company Number: None

PATIENT
  Sex: Female

DRUGS (1)
  1. FLURAZEPAM [Suspect]
     Indication: SLEEP DISORDER
     Dosage: 30 MG HS PO
     Route: 048
     Dates: start: 20131217, end: 20140220

REACTIONS (1)
  - Treatment failure [None]
